FAERS Safety Report 24421649 (Version 1)
Quarter: 2024Q4

REPORT INFORMATION
  Report Type: Spontaneous
  Country: US (occurrence: US)
  Receive Date: 20241010
  Receipt Date: 20241010
  Transmission Date: 20250114
  Serious: Yes (Hospitalization, Other)
  Sender: APOTEX
  Company Number: US-APOTEX-2024AP011710

PATIENT
  Age: 28 Year
  Sex: Female

DRUGS (1)
  1. BUPROPION [Suspect]
     Active Substance: BUPROPION
     Indication: Product used for unknown indication
     Dosage: UNK
     Route: 065

REACTIONS (6)
  - Toxic epidermal necrolysis [Recovered/Resolved]
  - Respiratory tract oedema [Recovered/Resolved]
  - Laryngeal oedema [Recovered/Resolved]
  - Septic shock [Recovered/Resolved]
  - Haemodynamic instability [Recovered/Resolved]
  - Left ventricular dysfunction [Recovered/Resolved]
